FAERS Safety Report 24691318 (Version 1)
Quarter: 2024Q4

REPORT INFORMATION
  Report Type: Spontaneous
  Country: DE (occurrence: DE)
  Receive Date: 20241203
  Receipt Date: 20241203
  Transmission Date: 20250114
  Serious: Yes (Other)
  Sender: NOVARTIS
  Company Number: DE-002147023-NVSC2024DE229302

PATIENT
  Age: 22 Year
  Sex: Male

DRUGS (2)
  1. COSENTYX [Suspect]
     Active Substance: SECUKINUMAB
     Indication: Psoriasis
     Dosage: 150 MG
     Route: 065
     Dates: start: 202211
  2. COSENTYX [Suspect]
     Active Substance: SECUKINUMAB
     Dosage: 300 MG
     Route: 065
     Dates: end: 202308

REACTIONS (4)
  - Chronic recurrent multifocal osteomyelitis [Recovered/Resolved]
  - Infection [Recovered/Resolved]
  - Subcutaneous abscess [Recovered/Resolved]
  - Drug ineffective [Unknown]
